FAERS Safety Report 12037458 (Version 1)
Quarter: 2016Q1

REPORT INFORMATION
  Report Type: Report from Study
  Country: IT (occurrence: IT)
  Receive Date: 20160208
  Receipt Date: 20160208
  Transmission Date: 20160526
  Serious: Yes (Death)
  Sender: FDA-Public Use
  Company Number: IT-ACCORD-037631

PATIENT
  Age: 16 Year

DRUGS (1)
  1. ETOPOSIDE. [Suspect]
     Active Substance: ETOPOSIDE
     Indication: METASTASIS
     Dosage: TOTAL 12 CYCLE RECEIVED.
     Route: 048

REACTIONS (1)
  - Leukaemia [Fatal]
